FAERS Safety Report 4826118-7 (Version None)
Quarter: 2005Q4

REPORT INFORMATION
  Report Type: 
  Country: None (occurrence: None)
  Receive Date: 20051109
  Receipt Date: 20051028
  Transmission Date: 20060501
  Serious: Yes (Other)
  Sender: FDA-Public Use
  Company Number: 2005149485

PATIENT
  Age: 29 Year
  Sex: Female
  Weight: 68.0396 kg

DRUGS (7)
  1. DEPO-PROVERA [Suspect]
     Indication: MENORRHAGIA
     Dosage: 1ST INJECTION, INTRAMUSCULAR
     Route: 030
     Dates: start: 20050621, end: 20050621
  2. CLARITIN [Concomitant]
  3. NASACORT [Concomitant]
  4. VALTREX [Concomitant]
  5. HYDROCODONE BITARTRATE [Concomitant]
  6. FLEXERIL [Concomitant]
  7. ALBUTEROL [Concomitant]

REACTIONS (2)
  - HAEMORRHAGE [None]
  - URINARY TRACT INFECTION [None]
